FAERS Safety Report 9758338 (Version 1)
Quarter: 2013Q4

REPORT INFORMATION
  Report Type: Spontaneous
  Country: US (occurrence: None)
  Receive Date: 20131213
  Receipt Date: 20131213
  Transmission Date: 20140711
  Serious: Yes (Death)
  Sender: FDA-Public Use
  Company Number: None

PATIENT
  Age: 52 Year
  Sex: Male
  Weight: 104 kg

DRUGS (1)
  1. ALTEPLASE [Suspect]
     Indication: EMBOLIC STROKE
     Route: 042

REACTIONS (4)
  - Convulsion [None]
  - Brain oedema [None]
  - Brain herniation [None]
  - Unresponsive to stimuli [None]
